FAERS Safety Report 16697829 (Version 1)
Quarter: 2019Q4

REPORT INFORMATION
  Report Type: Spontaneous
  Country: US (occurrence: US)
  Receive Date: 20190812
  Receipt Date: 20190812
  Transmission Date: 20200122
  Serious: Yes (Other)
  Sender: FDA-Public Use
  Company Number: None

PATIENT
  Age: 51 Year
  Sex: Female
  Weight: 101.25 kg

DRUGS (11)
  1. FLUTICASONE NASAL SPRAY [Concomitant]
     Active Substance: FLUTICASONE
  2. MAGNESIUM [Concomitant]
     Active Substance: MAGNESIUM
  3. WIXELA INHUB [Concomitant]
     Active Substance: FLUTICASONE PROPIONATE\SALMETEROL XINAFOATE
  4. PROAIR HFA [Concomitant]
     Active Substance: ALBUTEROL SULFATE
  5. SINGULAIR [Concomitant]
     Active Substance: MONTELUKAST SODIUM
  6. SYNTHROID [Concomitant]
     Active Substance: LEVOTHYROXINE SODIUM
  7. MEDROL DOSE PACK [Concomitant]
     Active Substance: METHYLPREDNISOLONE
  8. CLARITIN [Concomitant]
     Active Substance: LORATADINE
  9. WIXELA INHUB [Suspect]
     Active Substance: FLUTICASONE PROPIONATE\SALMETEROL XINAFOATE
     Indication: ASTHMA
     Route: 055
     Dates: start: 20190801, end: 20190812
  10. ADDERALL [Concomitant]
     Active Substance: AMPHETAMINE ASPARTATE\AMPHETAMINE SULFATE\DEXTROAMPHETAMINE SACCHARATE\DEXTROAMPHETAMINE SULFATE
  11. CALCIUM [Concomitant]
     Active Substance: CALCIUM

REACTIONS (5)
  - Muscle spasms [None]
  - Product substitution issue [None]
  - Asthma [None]
  - Ill-defined disorder [None]
  - Cough [None]

NARRATIVE: CASE EVENT DATE: 20190812
